FAERS Safety Report 23480028 (Version 2)
Quarter: 2025Q1

REPORT INFORMATION
  Report Type: Spontaneous
  Country: US (occurrence: US)
  Receive Date: 20240205
  Receipt Date: 20250226
  Transmission Date: 20250408
  Serious: No
  Sender: UCB
  Company Number: US-UCBSA-2023055923

PATIENT
  Sex: Female

DRUGS (7)
  1. LEVETIRACETAM [Suspect]
     Active Substance: LEVETIRACETAM
     Indication: Dystonia
  2. LEVETIRACETAM [Suspect]
     Active Substance: LEVETIRACETAM
     Indication: Off label use
  3. TOPIRAMATE [Concomitant]
     Active Substance: TOPIRAMATE
     Indication: Dystonia
  4. GABAPENTIN [Concomitant]
     Active Substance: GABAPENTIN
     Indication: Dystonia
  5. PROPRANOLOL [Concomitant]
     Active Substance: PROPRANOLOL HYDROCHLORIDE
     Indication: Dystonia
  6. CLONAZEPAM [Concomitant]
     Active Substance: CLONAZEPAM
     Indication: Dystonia
  7. TETRABENAZINE [Concomitant]
     Active Substance: TETRABENAZINE
     Indication: Dystonia

REACTIONS (2)
  - Off label use [Unknown]
  - Drug ineffective for unapproved indication [Unknown]
